FAERS Safety Report 12514044 (Version 1)
Quarter: 2016Q2

REPORT INFORMATION
  Report Type: Spontaneous
  Country: US (occurrence: None)
  Receive Date: 20160629
  Receipt Date: 20160629
  Transmission Date: 20160815
  Serious: No
  Sender: FDA-Public Use
  Company Number: None

PATIENT
  Age: 17 Year
  Sex: Male

DRUGS (6)
  1. DOCUSATE SODIUM. [Concomitant]
     Active Substance: DOCUSATE SODIUM
  2. BENZTROPINE [Concomitant]
     Active Substance: BENZTROPINE
  3. ALBUTEROL. [Concomitant]
     Active Substance: ALBUTEROL
  4. CLONIDINE TRANSDERMAL SYSTEM [Suspect]
     Active Substance: CLONIDINE
     Indication: TIC
     Route: 061
  5. CLOZAPINE. [Concomitant]
     Active Substance: CLOZAPINE
  6. DIPHENHYDRAMINE. [Concomitant]
     Active Substance: DIPHENHYDRAMINE

REACTIONS (1)
  - Application site rash [None]

NARRATIVE: CASE EVENT DATE: 20160109
